FAERS Safety Report 5563886-3 (Version None)
Quarter: 2007Q4

REPORT INFORMATION
  Report Type: 
  Country: None (occurrence: None)
  Receive Date: 20071217
  Receipt Date: 20070920
  Transmission Date: 20080405
  Serious: No
  Sender: FDA-Public Use
  Company Number: US-ASTRAZENECA-2007UW22277

PATIENT
  Age: 51 Year
  Sex: Female
  Weight: 79.4 kg

DRUGS (5)
  1. CRESTOR [Suspect]
     Indication: HYPERLIPIDAEMIA
     Route: 048
     Dates: start: 20070528
  2. HYDROCHLOROTHIAZIDE [Concomitant]
  3. ARIMIDEX [Concomitant]
  4. POTASSIUM CHLORIDE [Concomitant]
  5. MVT [Concomitant]

REACTIONS (1)
  - MICTURITION URGENCY [None]
